FAERS Safety Report 7033031-6 (Version None)
Quarter: 2010Q4

REPORT INFORMATION
  Report Type: 
  Country: None (occurrence: None)
  Receive Date: 20101007
  Receipt Date: 20100929
  Transmission Date: 20110411
  Serious: Yes (Other)
  Sender: FDA-Public Use
  Company Number: CN-PFIZER INC-2010118150

PATIENT
  Age: 57 Year
  Sex: Male

DRUGS (2)
  1. LIPITOR [Suspect]
     Dosage: 20 MG, 1X/DAY
     Route: 048
     Dates: start: 20100910
  2. BETAHISTINE [Suspect]
     Dosage: 12 MG, 3X/DAY
     Route: 048
     Dates: start: 20100910

REACTIONS (2)
  - BLOOD TRIGLYCERIDES INCREASED [None]
  - TRANSAMINASES INCREASED [None]
